FAERS Safety Report 5429574-9 (Version None)
Quarter: 2007Q3

REPORT INFORMATION
  Report Type: 
  Country: None (occurrence: None)
  Receive Date: 20070829
  Receipt Date: 20070717
  Transmission Date: 20080115
  Serious: No
  Sender: FDA-Public Use
  Company Number: A0636543A

PATIENT
  Age: 35 Year
  Sex: Male

DRUGS (11)
  1. EPZICOM [Suspect]
     Indication: HIV INFECTION
     Dosage: 1TAB PER DAY
     Route: 048
     Dates: start: 20060323, end: 20070120
  2. LEXIVA [Concomitant]
     Indication: HYPERTENSION
     Dosage: 700MG TWICE PER DAY
     Route: 048
     Dates: start: 20060413
  3. NORVIR [Concomitant]
     Indication: HYPERTENSION
     Dosage: 100MG TWICE PER DAY
     Route: 048
     Dates: start: 20060413
  4. AVINZA [Concomitant]
     Indication: PAIN
     Dosage: 90MG IN THE MORNING
     Route: 048
     Dates: start: 20060413
  5. DURAGESIC-100 [Concomitant]
     Indication: PAIN
     Dosage: 125MCG AS REQUIRED
     Route: 062
  6. NORCO [Concomitant]
     Indication: PAIN
     Route: 048
  7. LEXAPRO [Concomitant]
     Indication: DEPRESSION
     Dosage: 10MG PER DAY
     Route: 048
     Dates: start: 20060413
  8. SINGULAIR [Concomitant]
     Route: 048
     Dates: start: 20060413
  9. ALLEGRA [Concomitant]
     Dosage: 180MG PER DAY
     Route: 048
     Dates: start: 20060413
  10. XANAX [Concomitant]
     Dosage: 1MG AS REQUIRED
     Route: 048
  11. VALIUM [Concomitant]
     Dosage: 10MG PER DAY
     Route: 048

REACTIONS (8)
  - ARTHRALGIA [None]
  - DIARRHOEA [None]
  - FATIGUE [None]
  - HYPERSENSITIVITY [None]
  - NAUSEA [None]
  - PYREXIA [None]
  - RASH [None]
  - VOMITING [None]
